FAERS Safety Report 5780678-0 (Version None)
Quarter: 2008Q2

REPORT INFORMATION
  Report Type: 
  Country: None (occurrence: None)
  Receive Date: 20080620
  Receipt Date: 20080310
  Transmission Date: 20081010
  Serious: No
  Sender: FDA-Public Use
  Company Number: US-BOEHRINGER INGELHEIM GMBH, GERMANY-2007-BP-16598BP

PATIENT
  Sex: Female
  Weight: 59 kg

DRUGS (19)
  1. MIRAPEX [Suspect]
     Indication: PARKINSON'S DISEASE
     Dates: start: 20011206, end: 20050101
  2. CLONAZEPAM [Concomitant]
     Indication: ANXIETY
  3. EFFEXOR [Concomitant]
     Indication: DEPRESSION
  4. STALEVO 100 [Concomitant]
     Indication: PARKINSON'S DISEASE
  5. PREMPHASE 14/14 [Concomitant]
  6. SELEGILINE HCL [Concomitant]
  7. PERCOCET [Concomitant]
  8. SINEMET [Concomitant]
  9. SINEMET CR [Concomitant]
  10. MOTRIN [Concomitant]
  11. LODOSYN [Concomitant]
  12. LEXAPRO [Concomitant]
  13. SEROQUEL [Concomitant]
  14. MACROBID [Concomitant]
  15. METROGEL [Concomitant]
  16. ANTIOXIDANT [Concomitant]
  17. COENZYME Q10 [Concomitant]
  18. CALCIUM [Concomitant]
  19. IBUROFEN [Concomitant]

REACTIONS (6)
  - COMPULSIVE SHOPPING [None]
  - EMOTIONAL DISTRESS [None]
  - HYPERSEXUALITY [None]
  - LIBIDO INCREASED [None]
  - OBSESSIVE-COMPULSIVE DISORDER [None]
  - PATHOLOGICAL GAMBLING [None]
